FAERS Safety Report 5920272-1 (Version None)
Quarter: 2008Q4

REPORT INFORMATION
  Report Type: 
  Country: None (occurrence: None)
  Receive Date: 20081016
  Receipt Date: 20081008
  Transmission Date: 20090506
  Serious: Yes (Other)
  Sender: FDA-Public Use
  Company Number: US-ASTRAZENECA-2008UW21967

PATIENT
  Age: 51 Year
  Sex: Female

DRUGS (2)
  1. CRESTOR [Suspect]
     Route: 048
     Dates: start: 20070101, end: 20070101
  2. CRESTOR [Suspect]
     Route: 048
     Dates: start: 20080222, end: 20080901

REACTIONS (3)
  - ABASIA [None]
  - ARTHRALGIA [None]
  - PAIN IN EXTREMITY [None]
